FAERS Safety Report 5509876-8 (Version None)
Quarter: 2007Q4

REPORT INFORMATION
  Report Type: 
  Country: None (occurrence: None)
  Receive Date: 20071106
  Receipt Date: 20071023
  Transmission Date: 20080405
  Serious: Yes (Hospitalization, Other)
  Sender: FDA-Public Use
  Company Number: CHNY2007FR03298

PATIENT
  Age: 46 Year
  Sex: Female
  Weight: 57 kg

DRUGS (6)
  1. NICOTINE [Suspect]
     Indication: SMOKING CESSATION THERAPY
     Dosage: 21 MG, QD, TRANSDERMAL
     Route: 062
     Dates: start: 20070711, end: 20071010
  2. NICOTINE [Suspect]
     Indication: SMOKING CESSATION THERAPY
     Dosage: 2 MG, BUCCAL
     Route: 002
     Dates: start: 20070718, end: 20071010
  3. NICOTINE [Concomitant]
  4. NICORETTE [Concomitant]
  5. NICORETTE [Concomitant]
  6. NICOPASS [Concomitant]

REACTIONS (6)
  - ANGIOEDEMA [None]
  - DRY MOUTH [None]
  - DRY THROAT [None]
  - DYSPNOEA [None]
  - MULTIPLE DRUG OVERDOSE [None]
  - PHARYNGEAL OEDEMA [None]
